FAERS Safety Report 4699282-0 (Version None)
Quarter: 2005Q2

REPORT INFORMATION
  Report Type: 
  Country: None (occurrence: None)
  Receive Date: 20050624
  Receipt Date: 20050407
  Transmission Date: 20051028
  Serious: Yes (Other)
  Sender: FDA-Public Use
  Company Number: 13611

PATIENT
  Age: 25 Year
  Sex: Female

DRUGS (3)
  1. BUPROPION [Suspect]
     Indication: MAJOR DEPRESSION
     Dates: start: 20050407
  2. PRENATAL VITAMINS [Concomitant]
     Dosage: 1TAB PER DAY
     Dates: start: 20040919
  3. CALCIUM GLUCONATE [Concomitant]
     Dosage: 1200MG TWICE PER DAY
     Dates: start: 20040919

REACTIONS (3)
  - DEFICIENCY ANAEMIA [None]
  - GASTROINTESTINAL INFECTION [None]
  - POLYHYDRAMNIOS [None]
